FAERS Safety Report 15651609 (Version 2)
Quarter: 2019Q1

REPORT INFORMATION
  Report Type: Spontaneous
  Country: DE (occurrence: DE)
  Receive Date: 20181123
  Receipt Date: 20190111
  Transmission Date: 20190417
  Serious: Yes (Hospitalization, Other)
  Sender: FDA-Public Use
  Company Number: PHHY2018DE159291

PATIENT
  Age: 60 Year
  Sex: Male
  Weight: 84 kg

DRUGS (6)
  1. BUPROPION. [Concomitant]
     Active Substance: BUPROPION
     Indication: DEPRESSION
     Dosage: UNK
     Route: 065
  2. LITHIUM CARBON [Concomitant]
     Indication: DEPRESSION
     Dosage: UNK
     Route: 065
  3. TRAZODON [Concomitant]
     Active Substance: TRAZODONE HYDROCHLORIDE
     Indication: DEPRESSION
     Dosage: UNK
     Route: 065
  4. TIMOLOL. [Concomitant]
     Active Substance: TIMOLOL
     Indication: GLAUCOMA
     Dosage: UNK
     Route: 065
  5. ETANERCEPT [Suspect]
     Active Substance: ETANERCEPT
     Indication: PSORIASIS
     Dosage: UNK
     Route: 058
     Dates: start: 20131221
  6. TESTOSTERONE UNDECANOATE. [Concomitant]
     Active Substance: TESTOSTERONE UNDECANOATE
     Indication: ANDROGEN DEFICIENCY
     Dosage: UNK
     Route: 065

REACTIONS (3)
  - Vomiting [Unknown]
  - Vertigo [Unknown]
  - Deafness unilateral [Unknown]

NARRATIVE: CASE EVENT DATE: 20181018
